FAERS Safety Report 8594468-7 (Version None)
Quarter: 2012Q3

REPORT INFORMATION
  Report Type: 
  Country: None (occurrence: None)
  Receive Date: 20120815
  Receipt Date: 20120731
  Transmission Date: 20120928
  Serious: Yes (Congenital Anomaly)
  Sender: FDA-Public Use
  Company Number: GB-MSD-1207GBR003029

PATIENT

DRUGS (3)
  1. ISENTRESS [Suspect]
     Dosage: UNK
     Route: 064
     Dates: start: 20120101
  2. [THERAPY UNSPECIFIED] [Suspect]
     Route: 064
  3. MARAVIROC [Suspect]
     Dosage: UNK
     Route: 064
     Dates: start: 20120101

REACTIONS (2)
  - FOETAL EXPOSURE DURING PREGNANCY [None]
  - POLYDACTYLY [None]
